FAERS Safety Report 17505576 (Version 1)
Quarter: 2020Q1

REPORT INFORMATION
  Report Type: Report from Study
  Country: CO (occurrence: CO)
  Receive Date: 20200306
  Receipt Date: 20200306
  Transmission Date: 20200409
  Serious: Yes (Hospitalization, Other)
  Sender: FDA-Public Use
  Company Number: CO-ROCHE-2418705

PATIENT
  Sex: Male

DRUGS (1)
  1. MYCOPHENOLATE MOFETIL. [Suspect]
     Active Substance: MYCOPHENOLATE MOFETIL
     Indication: PRODUCT USED FOR UNKNOWN INDICATION
     Dosage: FOUR IN THE MORNING AND FOUR IN THE AFTERNOON
     Route: 048

REACTIONS (3)
  - Kidney transplant rejection [Unknown]
  - Blood creatinine increased [Unknown]
  - Blood pressure fluctuation [Unknown]
